FAERS Safety Report 25713765 (Version 1)
Quarter: 2025Q3

REPORT INFORMATION
  Report Type: Other
  Country: CH (occurrence: CH)
  Receive Date: 20250822
  Receipt Date: 20250822
  Transmission Date: 20251021
  Serious: Yes (Other)
  Sender: PL DEVELOPMENTS
  Company Number: CH-P+L Devolo-2182989

PATIENT
  Age: 63 Year
  Sex: Male

DRUGS (2)
  1. ESOMEPRAZOLE MAGNESIUM [Suspect]
     Active Substance: ESOMEPRAZOLE MAGNESIUM
     Indication: Product used for unknown indication
  2. HYDROCHLOROTHIAZIDE [Interacting]
     Active Substance: HYDROCHLOROTHIAZIDE

REACTIONS (2)
  - Drug interaction [Recovered/Resolved]
  - Gitelman^s syndrome [Recovered/Resolved]
